FAERS Safety Report 25235285 (Version 1)
Quarter: 2025Q2

REPORT INFORMATION
  Report Type: Other
  Country: SI (occurrence: SI)
  Receive Date: 20250424
  Receipt Date: 20250424
  Transmission Date: 20250717
  Serious: Yes (Hospitalization)
  Sender: Apozeal Pharmaceuticals
  Company Number: SI-Apozeal Pharmaceuticals-2175528

PATIENT
  Sex: Male

DRUGS (9)
  1. RISPERIDONE [Suspect]
     Active Substance: RISPERIDONE
     Indication: Mental disorder
     Dates: start: 2018
  2. HALOPERIDOL [Interacting]
     Active Substance: HALOPERIDOL
     Dates: start: 1994
  3. RAMIPRIL [Concomitant]
     Active Substance: RAMIPRIL
  4. RIVAROXABAN [Concomitant]
     Active Substance: RIVAROXABAN
  5. BISOPROLOL FUMARATE [Concomitant]
     Active Substance: BISOPROLOL FUMARATE
  6. FUROSEMIDE [Concomitant]
     Active Substance: FUROSEMIDE
  7. CLONAZEPAM [Concomitant]
     Active Substance: CLONAZEPAM
  8. VALPROIC ACID [Suspect]
     Active Substance: VALPROIC ACID
     Dates: start: 2011
  9. AMIODARONE HYDROCHLORIDE [Interacting]
     Active Substance: AMIODARONE HYDROCHLORIDE

REACTIONS (2)
  - Extrapyramidal disorder [Unknown]
  - Drug interaction [Unknown]
